FAERS Safety Report 18291319 (Version 1)
Quarter: 2020Q3

REPORT INFORMATION
  Report Type: Spontaneous
  Country: US (occurrence: US)
  Receive Date: 20200921
  Receipt Date: 20200921
  Transmission Date: 20201103
  Serious: Yes (Life-Threatening, Hospitalization, Other)
  Sender: FDA-Public Use
  Company Number: US-JNJFOC-20200906767

PATIENT
  Age: 7 Month
  Sex: Male

DRUGS (3)
  1. SILDENAFIL. [Suspect]
     Active Substance: SILDENAFIL
     Indication: PULMONARY HYPERTENSION
     Route: 065
  2. OXYGEN. [Concomitant]
     Active Substance: OXYGEN
  3. TRACLEER [Suspect]
     Active Substance: BOSENTAN
     Indication: PULMONARY HYPERTENSION
     Route: 065

REACTIONS (9)
  - Acute respiratory distress syndrome [Unknown]
  - Pneumothorax [Unknown]
  - Pulmonary hypertensive crisis [Unknown]
  - Off label use [Unknown]
  - Respiratory arrest [Unknown]
  - Product use issue [Unknown]
  - Hypercapnia [Unknown]
  - Oxygen saturation decreased [Recovering/Resolving]
  - Parainfluenzae virus infection [Unknown]
